FAERS Safety Report 8961157 (Version 2)
Quarter: 2013Q1

REPORT INFORMATION
  Report Type: Spontaneous
  Country: GB (occurrence: GB)
  Receive Date: 20121213
  Receipt Date: 20130219
  Transmission Date: 20140127
  Serious: Yes (Death)
  Sender: FDA-Public Use
  Company Number: PHFR2012GB006382

PATIENT
  Age: 82 None
  Sex: Male

DRUGS (6)
  1. CLOZARIL [Suspect]
     Indication: SCHIZOPHRENIA
     Dosage: UNK UKN, UNK
     Dates: start: 20110505
  2. PAROXETINE [Concomitant]
     Indication: DEPRESSION
     Dosage: 20 MG DAILY
     Route: 048
  3. ADCAL D3 [Concomitant]
     Dosage: UNK UKN, BID
     Route: 048
  4. CO-BENELDOPA [Concomitant]
     Dosage: UNK UKN, TID
     Route: 048
  5. FERROUS SULPHATE [Concomitant]
     Indication: ANAEMIA
     Dosage: 200 MG, BID
     Route: 048
  6. FOLIC ACID [Concomitant]
     Indication: ANAEMIA
     Dosage: 5 MG, BID
     Route: 048

REACTIONS (4)
  - Parkinson^s disease [Fatal]
  - Dementia [Fatal]
  - Pneumonia aspiration [Fatal]
  - Anaemia [Unknown]
